FAERS Safety Report 13945353 (Version 4)
Quarter: 2018Q4

REPORT INFORMATION
  Report Type: Spontaneous
  Country: US (occurrence: US)
  Receive Date: 20170907
  Receipt Date: 20181005
  Transmission Date: 20190204
  Serious: Yes (Other)
  Sender: FDA-Public Use
  Company Number: US-SA-2017SA164150

PATIENT
  Age: 61 Year
  Sex: Female

DRUGS (3)
  1. LANTUS [Suspect]
     Active Substance: INSULIN GLARGINE
     Indication: TYPE 2 DIABETES MELLITUS
     Dosage: 20 IU,QD
     Route: 051
     Dates: start: 2012
  2. SOLOSTAR [Suspect]
     Active Substance: DEVICE
     Indication: TYPE 2 DIABETES MELLITUS
     Dates: start: 2012
  3. LANTUS [Suspect]
     Active Substance: INSULIN GLARGINE
     Dosage: 32 U

REACTIONS (8)
  - Cataract operation [Unknown]
  - Product dose omission [Unknown]
  - Device issue [Unknown]
  - Expired product administered [Unknown]
  - Neoplasm malignant [Unknown]
  - Malaise [Unknown]
  - Blood glucose increased [Unknown]
  - Wrong technique in product usage process [Unknown]
